FAERS Safety Report 8137006-5 (Version None)
Quarter: 2012Q1

REPORT INFORMATION
  Report Type: 
  Country: None (occurrence: None)
  Receive Date: 20120215
  Receipt Date: 20120206
  Transmission Date: 20120608
  Serious: Yes (Life-Threatening, Hospitalization, Other)
  Sender: FDA-Public Use
  Company Number: GR-BIOGENIDEC-2011BI041114

PATIENT
  Age: 31 Year
  Sex: Female
  Weight: 55 kg

DRUGS (5)
  1. TYSABRI [Suspect]
     Indication: MULTIPLE SCLEROSIS
     Route: 042
     Dates: start: 20070501, end: 20110707
  2. TOVIAZ [Concomitant]
     Route: 048
  3. XANAX [Concomitant]
     Route: 048
  4. INDERAL [Concomitant]
  5. KEPPRA [Concomitant]
     Route: 048

REACTIONS (1)
  - PROGRESSIVE MULTIFOCAL LEUKOENCEPHALOPATHY [None]
